FAERS Safety Report 7276360-3 (Version None)
Quarter: 2011Q1

REPORT INFORMATION
  Report Type: 
  Country: None (occurrence: None)
  Receive Date: 20110204
  Receipt Date: 20110131
  Transmission Date: 20110831
  Serious: Yes (Hospitalization)
  Sender: FDA-Public Use
  Company Number: DE-US-EMD SERONO, INC.-7034662

PATIENT
  Sex: Female
  Weight: 65 kg

DRUGS (3)
  1. REBIF [Suspect]
     Indication: MULTIPLE SCLEROSIS
     Route: 058
     Dates: start: 20081201
  2. PARACETAMOL [Concomitant]
  3. REBIF [Suspect]
     Dates: start: 20110108

REACTIONS (1)
  - BREAST CANCER [None]
